FAERS Safety Report 7859599-5 (Version None)
Quarter: 2011Q4

REPORT INFORMATION
  Report Type: 
  Country: None (occurrence: None)
  Receive Date: 20111027
  Receipt Date: 20111025
  Transmission Date: 20120403
  Serious: Yes (Other)
  Sender: FDA-Public Use
  Company Number: US-PFIZER INC-2011260316

PATIENT
  Age: 35 Year
  Sex: Male

DRUGS (4)
  1. ZYPREXA [Suspect]
     Indication: PARANOIA
     Dosage: UNK
     Dates: start: 20110801, end: 20110101
  2. DILANTIN [Concomitant]
     Indication: CONVULSION
     Dosage: UNK
  3. GEODON [Suspect]
     Indication: PARANOIA
     Dosage: 80 MG, 2X/DAY
     Dates: start: 20111001, end: 20111001
  4. TEGRETOL [Concomitant]
     Dosage: UNK

REACTIONS (5)
  - SOMNOLENCE [None]
  - INCREASED APPETITE [None]
  - PARANOIA [None]
  - AGITATION [None]
  - WEIGHT INCREASED [None]
